FAERS Safety Report 15308472 (Version 2)
Quarter: 2018Q3

REPORT INFORMATION
  Report Type: Report from Study
  Country: US (occurrence: US)
  Receive Date: 20180822
  Receipt Date: 20180920
  Transmission Date: 20181010
  Serious: Yes (Death, Hospitalization, Other)
  Sender: FDA-Public Use
  Company Number: US-GILEAD-2018-0357614

PATIENT
  Age: 91 Year
  Sex: Male

DRUGS (32)
  1. TYVASO [Concomitant]
     Active Substance: TREPROSTINIL
  2. CLINDAMYCINE                       /00166001/ [Concomitant]
     Active Substance: CLINDAMYCIN
  3. COLCRYS [Concomitant]
     Active Substance: COLCHICINE
  4. FLUTICASONE. [Concomitant]
     Active Substance: FLUTICASONE
  5. OMEPRAZOLE. [Concomitant]
     Active Substance: OMEPRAZOLE
  6. ST. JOSEPH ASPIRIN ADULT CHEWABLE [Concomitant]
  7. CALCIUM MAGNESIUM                  /00591201/ [Concomitant]
  8. FISH OIL [Concomitant]
     Active Substance: FISH OIL
  9. LEVOTHYROXINE. [Concomitant]
     Active Substance: LEVOTHYROXINE
  10. AMBRISENTAN [Suspect]
     Active Substance: AMBRISENTAN
     Indication: PULMONARY ARTERIAL HYPERTENSION
     Dosage: 5 MG, QD
     Route: 065
     Dates: start: 20080111
  11. NYSTATIN. [Concomitant]
     Active Substance: NYSTATIN
  12. POTASSIUM CHLORIDE. [Concomitant]
     Active Substance: POTASSIUM CHLORIDE
  13. SILDENAFIL. [Concomitant]
     Active Substance: SILDENAFIL
  14. AMOXICILLIN. [Concomitant]
     Active Substance: AMOXICILLIN
  15. IRON [Concomitant]
     Active Substance: IRON
  16. JEVITY                             /00706001/ [Concomitant]
  17. ALLOPURINOL. [Concomitant]
     Active Substance: ALLOPURINOL
  18. AMLODIPINE [Concomitant]
     Active Substance: AMLODIPINE BESYLATE
  19. APAP CODEINE [Concomitant]
  20. LORATADINE. [Concomitant]
     Active Substance: LORATADINE
  21. MYRBETRIQ [Concomitant]
     Active Substance: MIRABEGRON
  22. MAG DELAY [Concomitant]
  23. METOPROLOL. [Concomitant]
     Active Substance: METOPROLOL
  24. MULTIVITAMIN                       /00097801/ [Concomitant]
     Active Substance: VITAMINS
  25. POLYETHYLENE GLYCOL [Concomitant]
     Active Substance: POLYETHYLENE GLYCOLS
  26. REVATIO [Concomitant]
     Active Substance: SILDENAFIL CITRATE
  27. SYNTHROID [Concomitant]
     Active Substance: LEVOTHYROXINE SODIUM
  28. ALDACTONE [Concomitant]
     Active Substance: SPIRONOLACTONE
  29. FUROSEMIDE. [Concomitant]
     Active Substance: FUROSEMIDE
  30. HEPARIN [Concomitant]
     Active Substance: HEPARIN SODIUM
  31. PANTOPRAZOLE [Concomitant]
     Active Substance: PANTOPRAZOLE
  32. SPIRONOLACTONE. [Concomitant]
     Active Substance: SPIRONOLACTONE

REACTIONS (2)
  - Thrombosis [Unknown]
  - Death [Fatal]
